FAERS Safety Report 6355411-4 (Version None)
Quarter: 2009Q3

REPORT INFORMATION
  Report Type: 
  Country: None (occurrence: None)
  Receive Date: 20090914
  Receipt Date: 20090914
  Transmission Date: 20100115
  Serious: Yes (Hospitalization)
  Sender: FDA-Public Use
  Company Number: DE-WYE-G04431509

PATIENT
  Age: 25 Year
  Sex: Male

DRUGS (1)
  1. IBUPROFEN [Suspect]
     Dosage: 1 DOSE PER DAY
     Dates: start: 20090911, end: 20090911

REACTIONS (3)
  - DIZZINESS [None]
  - EYELID OEDEMA [None]
  - HYPERHIDROSIS [None]
